FAERS Safety Report 6578558-6 (Version None)
Quarter: 2010Q1

REPORT INFORMATION
  Report Type: 
  Country: None (occurrence: None)
  Receive Date: 20100211
  Receipt Date: 20100203
  Transmission Date: 20100710
  Serious: Yes (Other)
  Sender: FDA-Public Use
  Company Number: JP-B.I. PHARMACEUTICALS,INC./RIDGEFIELD-2010-DE-00634GD

PATIENT
  Age: 80 Year
  Sex: Female

DRUGS (2)
  1. TELMISARTAN [Suspect]
  2. CEFDINIR [Suspect]

REACTIONS (3)
  - ACUTE GENERALISED EXANTHEMATOUS PUSTULOSIS [None]
  - ERYTHEMA MULTIFORME [None]
  - PYREXIA [None]
